FAERS Safety Report 8175425-1 (Version None)
Quarter: 2012Q1

REPORT INFORMATION
  Report Type: 
  Country: None (occurrence: None)
  Receive Date: 20120229
  Receipt Date: 20120220
  Transmission Date: 20120608
  Serious: Yes (Other)
  Sender: FDA-Public Use
  Company Number: US-ASTRAZENECA-2009UW18454

PATIENT
  Age: 86 Year
  Sex: Female
  Weight: 72.6 kg

DRUGS (13)
  1. VITAMIN E [Concomitant]
     Indication: VITAMIN SUPPLEMENTATION
     Route: 048
  2. CELEXA [Concomitant]
     Indication: RESTLESSNESS
     Dosage: DAILY
     Route: 048
     Dates: start: 20080101
  3. NORVASC [Concomitant]
     Indication: BLOOD PRESSURE ABNORMAL
     Route: 048
     Dates: start: 20080101
  4. CITRACAL [Concomitant]
     Indication: MINERAL SUPPLEMENTATION
     Dosage: TID
     Route: 048
  5. MULTI-VITAMINS [Concomitant]
     Indication: VITAMIN SUPPLEMENTATION
     Dosage: QD
     Route: 048
  6. GLUCOSAMINE [Concomitant]
  7. ARIMIDEX [Suspect]
     Indication: BREAST CANCER
     Route: 048
     Dates: start: 20030101
  8. NEXIUM [Suspect]
     Indication: GASTROOESOPHAGEAL REFLUX DISEASE
     Route: 048
     Dates: start: 19980101
  9. RECLAST [Concomitant]
     Indication: BONE DISORDER
     Dosage: YEAR
     Route: 042
     Dates: start: 20080101
  10. NEXIUM [Suspect]
     Indication: HIATUS HERNIA
     Route: 048
     Dates: start: 19980101
  11. PRILOSEC [Suspect]
     Indication: GASTROOESOPHAGEAL REFLUX DISEASE
     Route: 048
  12. VITAMIN D [Concomitant]
     Indication: PROPHYLAXIS
     Route: 048
  13. LEXAPRO [Concomitant]

REACTIONS (17)
  - BREAST CANCER [None]
  - ARTHRITIS [None]
  - BALANCE DISORDER [None]
  - DYSPEPSIA [None]
  - PAIN [None]
  - DRUG INEFFECTIVE [None]
  - SPINAL COLUMN STENOSIS [None]
  - CONTUSION [None]
  - ARTHRALGIA [None]
  - TRANSIENT ISCHAEMIC ATTACK [None]
  - FALL [None]
  - CHEST DISCOMFORT [None]
  - GAIT DISTURBANCE [None]
  - SCOLIOSIS [None]
  - CARPAL TUNNEL SYNDROME [None]
  - PHARYNGEAL OEDEMA [None]
  - OFF LABEL USE [None]
